FAERS Safety Report 22357783 (Version 3)
Quarter: 2023Q2

REPORT INFORMATION
  Report Type: Spontaneous
  Country: US (occurrence: US)
  Receive Date: 20230524
  Receipt Date: 20230629
  Transmission Date: 20230721
  Serious: No
  Sender: FDA-Public Use
  Company Number: US-GLAXOSMITHKLINE-US2023AMR068727

PATIENT
  Sex: Female

DRUGS (1)
  1. ZEJULA [Suspect]
     Active Substance: NIRAPARIB
     Indication: Ovarian cancer
     Dosage: 200 MG, QD
     Dates: end: 20230616

REACTIONS (5)
  - Cough [Unknown]
  - Fatigue [Unknown]
  - Blood creatine increased [Unknown]
  - Platelet count decreased [Unknown]
  - Muscular weakness [Unknown]
